FAERS Safety Report 10020783 (Version 1)
Quarter: 2014Q1

REPORT INFORMATION
  Report Type: Spontaneous
  Country: TW (occurrence: TW)
  Receive Date: 20140319
  Receipt Date: 20140319
  Transmission Date: 20141002
  Serious: Yes (Other)
  Sender: FDA-Public Use
  Company Number: TW-ACCORD-022567

PATIENT
  Age: 55 Year
  Sex: Male

DRUGS (1)
  1. METHOTREXATE [Suspect]
     Indication: PSORIASIS

REACTIONS (6)
  - Overdose [Unknown]
  - Dysphagia [Unknown]
  - Hepatic function abnormal [Unknown]
  - Pancytopenia [Recovered/Resolved]
  - Pyrexia [Unknown]
  - Skin necrosis [Recovered/Resolved]
